FAERS Safety Report 12620044 (Version 4)
Quarter: 2016Q4

REPORT INFORMATION
  Report Type: Spontaneous
  Country: CZ (occurrence: CZ)
  Receive Date: 20160803
  Receipt Date: 20161014
  Transmission Date: 20170207
  Serious: Yes (Hospitalization)
  Sender: FDA-Public Use
  Company Number: CZ-TAKEDA-2016MPI006937

PATIENT
  Age: 72 Year
  Sex: Female
  Weight: 61 kg

DRUGS (22)
  1. DEGAN [Concomitant]
     Active Substance: METOCLOPRAMIDE HYDROCHLORIDE
     Indication: NAUSEA
     Dosage: 10 MG, QD
     Route: 048
     Dates: start: 20160502
  2. HELICID                            /00661201/ [Concomitant]
     Indication: GASTRIC ULCER
     Dosage: 20 MG, UNK
     Route: 048
     Dates: start: 20160425
  3. HERPESIN                           /00587301/ [Concomitant]
     Indication: HERPES VIRUS INFECTION
     Dosage: 400 MG, QD
     Route: 048
     Dates: start: 20160425
  4. AUGMENTIN [Concomitant]
     Active Substance: AMOXICILLIN\CLAVULANATE POTASSIUM
     Indication: HORDEOLUM
     Dosage: 1 G, BID
     Route: 048
     Dates: start: 20160512, end: 20160522
  5. MAGNOSOLV [Concomitant]
     Indication: TETANY
     Dosage: 365 MG, QD
     Route: 048
  6. STACYL [Concomitant]
     Indication: MITRAL VALVE INCOMPETENCE
     Dosage: 100 MG, QD
     Route: 048
     Dates: end: 20160508
  7. ZOFRAN [Concomitant]
     Active Substance: ONDANSETRON HYDROCHLORIDE
     Indication: NAUSEA
     Dosage: 8 MG, UNK
     Route: 048
     Dates: start: 20160502
  8. HEPAROID [Concomitant]
     Indication: HAEMATOMA
     Dosage: 2 MG, BID
     Route: 050
     Dates: start: 20160516, end: 20160606
  9. BONDRONAT                          /01304701/ [Concomitant]
     Active Substance: IBANDRONIC ACID
     Indication: OSTEOLYSIS
     Dosage: 50 MG, QD
     Route: 048
     Dates: start: 20160527
  10. HYDROCORTISONE. [Concomitant]
     Active Substance: HYDROCORTISONE
     Indication: HORDEOLUM
     Dosage: UNK, QD
     Route: 050
     Dates: start: 20160621
  11. PREDNISONE. [Suspect]
     Active Substance: PREDNISONE
     Indication: PLASMA CELL MYELOMA
     Dosage: 100 MG, UNK
     Route: 048
     Dates: start: 20160425
  12. BISOPROLOL [Concomitant]
     Active Substance: BISOPROLOL
     Indication: MITRAL VALVE INCOMPETENCE
     Dosage: 2.5 MG, QD
     Route: 048
  13. GODASAL [Concomitant]
     Active Substance: ASPIRIN\GLYCINE
     Indication: MITRAL VALVE INCOMPETENCE
     Dosage: 100 MG, QD
     Route: 048
  14. BISEPTOL [Concomitant]
     Active Substance: SULFAMETHOXAZOLE\TRIMETHOPRIM
     Indication: PNEUMOCYSTIS JIROVECII PNEUMONIA
     Dosage: 480 MG, QD
     Route: 048
     Dates: start: 20160425
  15. VELCADE [Suspect]
     Active Substance: BORTEZOMIB
     Indication: PLASMA CELL MYELOMA
     Dosage: 2.17 MG, UNK
     Route: 058
     Dates: start: 20160425
  16. IMODIUM [Concomitant]
     Active Substance: LOPERAMIDE HYDROCHLORIDE
     Indication: DIARRHOEA
     Dosage: 2 MG, TID
     Route: 048
     Dates: start: 20160425
  17. ZARZIO [Concomitant]
     Active Substance: FILGRASTIM
     Dosage: 48 IU, QD
     Route: 058
     Dates: start: 20160523, end: 20160525
  18. ZARZIO [Concomitant]
     Active Substance: FILGRASTIM
     Dosage: 48 IU, QD
     Route: 058
     Dates: start: 20160627, end: 20160628
  19. STACYL [Concomitant]
     Dosage: 100 MG, QD
     Route: 048
     Dates: start: 20160514
  20. AUGMENTIN [Concomitant]
     Active Substance: AMOXICILLIN\CLAVULANATE POTASSIUM
     Indication: BACTERIAL INFECTION
     Dosage: 1 G, BID
     Route: 048
     Dates: start: 20160718
  21. MELPHALAN [Suspect]
     Active Substance: MELPHALAN
     Indication: PLASMA CELL MYELOMA
     Dosage: 16 MG, UNK
     Route: 048
     Dates: start: 20160425
  22. ZARZIO [Concomitant]
     Active Substance: FILGRASTIM
     Indication: NEUTROPENIA
     Dosage: 48 IU, QD
     Route: 058
     Dates: start: 20160512, end: 20160515

REACTIONS (4)
  - Hordeolum [Unknown]
  - Haemoptysis [Recovered/Resolved]
  - Haematoma [Unknown]
  - Neutropenia [Unknown]

NARRATIVE: CASE EVENT DATE: 20160512
